FAERS Safety Report 4354156-X (Version None)
Quarter: 2004Q2

REPORT INFORMATION
  Report Type: 
  Country: None (occurrence: None)
  Receive Date: 20040503
  Receipt Date: 20040422
  Transmission Date: 20050107
  Serious: Yes (Other)
  Sender: FDA-Public Use
  Company Number: GBWYE712120APR04

PATIENT

DRUGS (3)
  1. EFFEXOR XR [Suspect]
     Indication: DEPRESSION
     Dosage: 37.5 MG 2 X PER 1 DAY
     Route: 048
     Dates: start: 20030924, end: 20040201
  2. ZOPICLONE (ZOPICLONE) [Concomitant]
  3. METHADONE (METHADONE) [Concomitant]

REACTIONS (2)
  - DRUG EXPOSURE DURING PREGNANCY [None]
  - POTTER'S SYNDROME [None]
